FAERS Safety Report 10489793 (Version 4)
Quarter: 2014Q4

REPORT INFORMATION
  Report Type: Spontaneous
  Country: JP (occurrence: JP)
  Receive Date: 20141002
  Receipt Date: 20141031
  Transmission Date: 20150528
  Serious: Yes (Other)
  Sender: FDA-Public Use
  Company Number: JP-PFIZER INC-2014269917

PATIENT
  Age: 7 Decade
  Sex: Male

DRUGS (2)
  1. LIPITOR [Suspect]
     Active Substance: ATORVASTATIN CALCIUM
     Indication: SUICIDE ATTEMPT
     Dosage: 300 MG, SINGLE
     Route: 048
  2. OLMETEC [Suspect]
     Active Substance: OLMESARTAN MEDOXOMIL
     Indication: SUICIDE ATTEMPT
     Dosage: 480 MG, SINGLE
     Route: 048

REACTIONS (3)
  - Emergency care [Recovered/Resolved]
  - Intentional overdose [Unknown]
  - Suicide attempt [Unknown]
